FAERS Safety Report 5072081-6 (Version None)
Quarter: 2006Q3

REPORT INFORMATION
  Report Type: 
  Country: None (occurrence: None)
  Receive Date: 20060807
  Receipt Date: 20060727
  Transmission Date: 20061208
  Serious: Yes (Other)
  Sender: FDA-Public Use
  Company Number: FR-JNJFOC-20060606056

PATIENT
  Age: 51 Year
  Sex: Female
  Weight: 84 kg

DRUGS (10)
  1. REMICADE [Suspect]
     Route: 042
  2. REMICADE [Suspect]
     Route: 042
  3. REMICADE [Suspect]
     Route: 042
  4. REMICADE [Suspect]
     Indication: ANKYLOSING SPONDYLITIS
     Route: 042
  5. MOBIC [Concomitant]
     Route: 048
  6. DAFALGAN CODEINE [Concomitant]
     Route: 048
  7. MORPHINE [Concomitant]
     Route: 048
  8. CARTREX [Concomitant]
     Route: 048
  9. BUTAZOLIDINE [Concomitant]
     Route: 048
  10. METHOTREXATE [Concomitant]
     Route: 048

REACTIONS (1)
  - PUSTULAR PSORIASIS [None]
